FAERS Safety Report 19763381 (Version 1)
Quarter: 2021Q3

REPORT INFORMATION
  Report Type: Report from Study
  Country: CA (occurrence: CA)
  Receive Date: 20210830
  Receipt Date: 20210830
  Transmission Date: 20211014
  Serious: Yes (Other)
  Sender: FDA-Public Use
  Company Number: CA-TAKEDA-2019TUS041492

PATIENT
  Age: 45 Year
  Sex: Female

DRUGS (6)
  1. OCREVUS [Concomitant]
     Active Substance: OCRELIZUMAB
     Dosage: UNK
  2. VEDOLIZUMAB [Suspect]
     Active Substance: VEDOLIZUMAB
     Indication: CROHN^S DISEASE
     Dosage: 300 MILLIGRAM
     Route: 042
     Dates: start: 20181022
  3. BUDESONIDE. [Concomitant]
     Active Substance: BUDESONIDE
     Dosage: UNK
  4. RITUXAN [Concomitant]
     Active Substance: RITUXIMAB
     Dosage: UNK, Q6MONTHS
  5. VITAMIN D NOS [Concomitant]
     Active Substance: VITAMIN D NOS
     Dosage: UNK
  6. FAMPYRA [Concomitant]
     Active Substance: DALFAMPRIDINE
     Dosage: UNK

REACTIONS (1)
  - Crohn^s disease [Unknown]
